FAERS Safety Report 17834068 (Version 1)
Quarter: 2020Q2

REPORT INFORMATION
  Report Type: Spontaneous
  Country: CA (occurrence: CA)
  Receive Date: 20200528
  Receipt Date: 20200528
  Transmission Date: 20200714
  Serious: Yes (Hospitalization)
  Sender: FDA-Public Use
  Company Number: CA-TEVA-2020-CA-1240429

PATIENT
  Age: 13 Year
  Sex: Female

DRUGS (5)
  1. FENTANYL. [Suspect]
     Active Substance: FENTANYL
     Indication: ANAESTHESIA
     Route: 042
  2. SEVOFLURANE. [Suspect]
     Active Substance: SEVOFLURANE
     Indication: INDUCTION OF ANAESTHESIA
     Route: 055
  3. PROPOFOL. [Suspect]
     Active Substance: PROPOFOL
     Indication: ANAESTHESIA
     Route: 040
  4. NITROUS OXIDE/OXYGEN 50:50 [Suspect]
     Active Substance: NITROUS OXIDE\OXYGEN
     Indication: INDUCTION OF ANAESTHESIA
     Route: 055
  5. MIDAZOLAM. [Concomitant]
     Active Substance: MIDAZOLAM
     Route: 048

REACTIONS (1)
  - Extrasystoles [Not Recovered/Not Resolved]
